FAERS Safety Report 9481907 (Version 2)
Quarter: 2013Q3

REPORT INFORMATION
  Report Type: Spontaneous
  Country: US (occurrence: US)
  Receive Date: 20130828
  Receipt Date: 20130926
  Transmission Date: 20140515
  Serious: Yes (Hospitalization)
  Sender: FDA-Public Use
  Company Number: US-BRISTOL-MYERS SQUIBB COMPANY-19195866

PATIENT
  Age: 52 Year
  Sex: Female
  Weight: 113.38 kg

DRUGS (5)
  1. KOMBIGLYZE XR [Suspect]
  2. AMLODIPINE [Concomitant]
  3. LISINOPRIL [Concomitant]
  4. ATORVASTATIN [Concomitant]
  5. HUMULIN 70/30 [Concomitant]
     Dosage: 7-9 UNITS TWICE DAILY DEPENDING ON BLOOD SUGAR LEVELS

REACTIONS (2)
  - Dehydration [Unknown]
  - Renal disorder [Unknown]
